FAERS Safety Report 8116216-7 (Version None)
Quarter: 2012Q1

REPORT INFORMATION
  Report Type: 
  Country: None (occurrence: None)
  Receive Date: 20120201
  Receipt Date: 20120124
  Transmission Date: 20120608
  Serious: Yes (Death, Hospitalization)
  Sender: FDA-Public Use
  Company Number: WAES 1104USA01556

PATIENT
  Age: 66 Year
  Sex: Male

DRUGS (10)
  1. PREDNISOLONE [Suspect]
     Indication: PROSTATE CANCER
     Dosage: 10 MG/DAILY PO
     Route: 048
     Dates: start: 20110117
  2. PLACEBO [Suspect]
     Indication: PROSTATE CANCER
     Dosage: PO
     Route: 048
     Dates: start: 20110117, end: 20110630
  3. LIPITOR [Concomitant]
  4. DECADRON [Suspect]
     Indication: PROSTATE CANCER
     Dosage: 8 MG/BID PO
     Route: 048
     Dates: start: 20110116, end: 20110118
  5. TAXOTERE [Suspect]
     Indication: PROSTATE CANCER
     Dosage: 75 MG/M[2]/DAILY IV
     Route: 042
     Dates: start: 20110117, end: 20110613
  6. MIDAZOLAM [Concomitant]
  7. ATACAND [Concomitant]
  8. ISTIN [Concomitant]
  9. BLINDED THERAPY [Suspect]
     Indication: PROSTATE CANCER
     Dosage: 100 MG/DAILY PO
     Route: 048
     Dates: start: 20110117, end: 20110630
  10. LIDOCAINE HCL [Concomitant]

REACTIONS (17)
  - BLOOD LACTATE DEHYDROGENASE INCREASED [None]
  - BLOOD CHLORIDE DECREASED [None]
  - GENERAL PHYSICAL HEALTH DETERIORATION [None]
  - ABDOMINAL PAIN UPPER [None]
  - RENAL FAILURE ACUTE [None]
  - GASTRIC ULCER [None]
  - CONSTIPATION [None]
  - RED BLOOD CELL COUNT DECREASED [None]
  - ALANINE AMINOTRANSFERASE INCREASED [None]
  - ACUTE CORONARY SYNDROME [None]
  - HYPERCALCAEMIA [None]
  - BLOOD ALKALINE PHOSPHATASE INCREASED [None]
  - HAEMATOCRIT DECREASED [None]
  - GAMMA-GLUTAMYLTRANSFERASE INCREASED [None]
  - CHEST PAIN [None]
  - PROSTATE CANCER METASTATIC [None]
  - REFLUX GASTRITIS [None]
